FAERS Safety Report 20290241 (Version 1)
Quarter: 2022Q1

REPORT INFORMATION
  Report Type: Spontaneous
  Country: US (occurrence: None)
  Receive Date: 20220103
  Receipt Date: 20220103
  Transmission Date: 20220423
  Serious: No
  Sender: FDA-Public Use
  Company Number: None

PATIENT
  Age: 65 Year
  Sex: Male
  Weight: 132 kg

DRUGS (1)
  1. SOTROVIMAB [Suspect]
     Active Substance: SOTROVIMAB
     Indication: COVID-19
     Dosage: 500 MG ONCE IV?
     Route: 042
     Dates: start: 20211221, end: 20211221

REACTIONS (4)
  - Dizziness [None]
  - Balance disorder [None]
  - Obsessive thoughts [None]
  - Feeling abnormal [None]

NARRATIVE: CASE EVENT DATE: 20211221
